FAERS Safety Report 5118341-1 (Version None)
Quarter: 2006Q4

REPORT INFORMATION
  Report Type: 
  Country: None (occurrence: None)
  Receive Date: 20061002
  Receipt Date: 20060707
  Transmission Date: 20070319
  Serious: Yes (Life-Threatening, Hospitalization, Other)
  Sender: FDA-Public Use
  Company Number: US-AVENTIS-200615692US

PATIENT
  Sex: Female

DRUGS (4)
  1. CLOMID [Suspect]
     Indication: INFERTILITY
     Dates: start: 20060411, end: 20060416
  2. CLOMID [Suspect]
     Dates: start: 20060606
  3. PROGESTERONE [Concomitant]
     Dosage: DOSE: 400MG DAILY BEGINNING DAY 17 OF CYCLE
     Dates: start: 20060401
  4. ESTRADIOL INJ [Concomitant]
     Dosage: DOSE: 6MG DAILY DAY 8-11 OF CYCLE
     Dates: start: 20060401

REACTIONS (54)
  - ACTIVATED PARTIAL THROMBOPLASTIN TIME PROLONGED [None]
  - ALANINE AMINOTRANSFERASE INCREASED [None]
  - AMMONIA INCREASED [None]
  - ASPARTATE AMINOTRANSFERASE INCREASED [None]
  - ASTHENIA [None]
  - BACTERIURIA [None]
  - BLOOD ALBUMIN DECREASED [None]
  - BLOOD ALKALINE PHOSPHATASE INCREASED [None]
  - BLOOD BILIRUBIN INCREASED [None]
  - BLOOD CALCIUM DECREASED [None]
  - BLOOD CHLORIDE INCREASED [None]
  - BLOOD GLUCOSE INCREASED [None]
  - BLOOD POTASSIUM DECREASED [None]
  - BLOOD UREA DECREASED [None]
  - CARBON DIOXIDE DECREASED [None]
  - CERULOPLASMIN INCREASED [None]
  - CHROMATURIA [None]
  - COAGULOPATHY [None]
  - COMA [None]
  - COMPLICATIONS OF TRANSPLANTED LIVER [None]
  - DIABETES MELLITUS [None]
  - ENCEPHALOPATHY [None]
  - EPSTEIN-BARR VIRUS ANTIBODY POSITIVE [None]
  - FATIGUE [None]
  - GALLBLADDER DISORDER [None]
  - GENERAL PHYSICAL HEALTH DETERIORATION [None]
  - GLUCOSE URINE PRESENT [None]
  - HAEMATURIA [None]
  - HEPATIC FAILURE [None]
  - HEPATIC NECROSIS [None]
  - IDIOSYNCRATIC DRUG REACTION [None]
  - INTERNATIONAL NORMALISED RATIO INCREASED [None]
  - JAUNDICE [None]
  - LARYNGITIS [None]
  - MEAN CELL HAEMOGLOBIN CONCENTRATION [None]
  - MEAN CELL HAEMOGLOBIN DECREASED [None]
  - MONOCYTE COUNT INCREASED [None]
  - NAUSEA [None]
  - NEUTROPHIL COUNT [None]
  - NEUTROPHIL PERCENTAGE INCREASED [None]
  - PROTEIN TOTAL DECREASED [None]
  - PROTHROMBIN TIME PROLONGED [None]
  - RED CELL DISTRIBUTION WIDTH INCREASED [None]
  - RENAL IMPAIRMENT [None]
  - TRANSPLANT REJECTION [None]
  - URINARY SEDIMENT PRESENT [None]
  - URINE ABNORMALITY [None]
  - URINE ANALYSIS ABNORMAL [None]
  - UROBILIN URINE PRESENT [None]
  - VOCAL CORD DISORDER [None]
  - VOMITING [None]
  - WEIGHT DECREASED [None]
  - WHITE BLOOD CELL COUNT INCREASED [None]
  - WHITE BLOOD CELLS URINE POSITIVE [None]
